FAERS Safety Report 10681988 (Version 1)
Quarter: 2014Q4

REPORT INFORMATION
  Report Type: Spontaneous
  Country: US (occurrence: None)
  Receive Date: 20141229
  Receipt Date: 20141229
  Transmission Date: 20150529
  Serious: Yes (Other)
  Sender: FDA-Public Use
  Company Number: None

PATIENT
  Age: 67 Year
  Sex: Male
  Weight: 75.3 kg

DRUGS (7)
  1. LISINOPRIL AND HCTZ [Concomitant]
     Active Substance: HYDROCHLOROTHIAZIDE\LISINOPRIL
  2. VITAMIN C [Concomitant]
     Active Substance: ASCORBIC ACID
  3. SINGULAIR [Concomitant]
     Active Substance: MONTELUKAST SODIUM
  4. MULTIVITAMIN [Concomitant]
     Active Substance: VITAMINS
  5. GLUCOSAMINE [Concomitant]
     Active Substance: GLUCOSAMINE
  6. MOXIFLOXACIN [Suspect]
     Active Substance: MOXIFLOXACIN
     Indication: SINUSITIS
     Dates: start: 20141219, end: 20141225
  7. ASPIRIN. [Concomitant]
     Active Substance: ASPIRIN

REACTIONS (13)
  - Fatigue [None]
  - Paraesthesia [None]
  - Dizziness [None]
  - Headache [None]
  - Nightmare [None]
  - Speech disorder [None]
  - Disturbance in attention [None]
  - Nausea [None]
  - Arthralgia [None]
  - Tinnitus [None]
  - Confusional state [None]
  - Thinking abnormal [None]
  - Abnormal dreams [None]

NARRATIVE: CASE EVENT DATE: 20141219
